FAERS Safety Report 9280269 (Version 1)
Quarter: 2013Q2

REPORT INFORMATION
  Report Type: Spontaneous
  Country: AU (occurrence: AU)
  Receive Date: 20130509
  Receipt Date: 20130509
  Transmission Date: 20140414
  Serious: Yes (Hospitalization)
  Sender: FDA-Public Use
  Company Number: AU-NAPPMUNDI-USA-2013-0101767

PATIENT
  Age: 58 Year
  Sex: Male

DRUGS (11)
  1. MS CONTIN TABLETS [Suspect]
     Indication: PRODUCT USED FOR UNKNOWN INDICATION
     Dosage: 60 MG, DAILY
     Route: 048
  2. CYMBALTA [Concomitant]
     Indication: PRODUCT USED FOR UNKNOWN INDICATION
  3. NEXIUM                             /01479302/ [Concomitant]
     Indication: PRODUCT USED FOR UNKNOWN INDICATION
  4. LYRICA [Concomitant]
     Indication: PRODUCT USED FOR UNKNOWN INDICATION
  5. CREON [Concomitant]
     Indication: PRODUCT USED FOR UNKNOWN INDICATION
  6. PANADOL OSTEO [Concomitant]
     Indication: PRODUCT USED FOR UNKNOWN INDICATION
  7. LAMOTRIGINE [Concomitant]
     Indication: PRODUCT USED FOR UNKNOWN INDICATION
  8. CHAMPIX [Concomitant]
     Indication: PRODUCT USED FOR UNKNOWN INDICATION
  9. EPILIM [Concomitant]
     Indication: PRODUCT USED FOR UNKNOWN INDICATION
  10. SEROQUEL [Concomitant]
     Indication: PRODUCT USED FOR UNKNOWN INDICATION
  11. MINIPRESS [Concomitant]
     Indication: PRODUCT USED FOR UNKNOWN INDICATION

REACTIONS (1)
  - Hospitalisation [Recovered/Resolved]
